FAERS Safety Report 20484578 (Version 2)
Quarter: 2022Q2

REPORT INFORMATION
  Report Type: Other
  Country: BR (occurrence: None)
  Receive Date: 20220217
  Receipt Date: 20220624
  Transmission Date: 20220720
  Serious: Yes (Hospitalization, Other)
  Sender: FDA-Public Use
  Company Number: BR-ROCHE-2792841

PATIENT
  Age: 32 Year
  Sex: Female
  Weight: 52.5 kg

DRUGS (8)
  1. OCREVUS [Suspect]
     Active Substance: OCRELIZUMAB
     Indication: Primary progressive multiple sclerosis
     Dosage: 300 MG/10 ML
     Route: 042
     Dates: start: 20201002
  2. OCREVUS [Suspect]
     Active Substance: OCRELIZUMAB
     Route: 065
     Dates: start: 202011
  3. PAROXETINE [Concomitant]
     Active Substance: PAROXETINE
     Indication: Depression
     Dates: start: 202011
  4. PREDNISOLONE [Concomitant]
     Active Substance: PREDNISOLONE
  5. CLARITHROMYCIN [Concomitant]
     Active Substance: CLARITHROMYCIN
  6. LEVOFLOXACIN [Concomitant]
     Active Substance: LEVOFLOXACIN
     Route: 048
  7. AMBROXOL ACEFYLLINATE [Concomitant]
     Active Substance: AMBROXOL ACEFYLLINATE
  8. KANAKION [Concomitant]

REACTIONS (27)
  - Neurogenic bladder [Not Recovered/Not Resolved]
  - Renal impairment [Recovering/Resolving]
  - Seizure [Recovered/Resolved]
  - Syncope [Recovered/Resolved]
  - Chronic kidney disease [Not Recovered/Not Resolved]
  - Hallucination [Recovered/Resolved]
  - Renal failure [Unknown]
  - Acute kidney injury [Recovered/Resolved]
  - Multiple sclerosis [Unknown]
  - Wheezing [Recovered/Resolved]
  - Haemoglobin decreased [Recovered/Resolved]
  - Peripheral swelling [Recovered/Resolved]
  - Pyrexia [Recovered/Resolved]
  - Muscle spasms [Recovered/Resolved]
  - Repetitive speech [Unknown]
  - Weight decreased [Recovered/Resolved]
  - Gait disturbance [Recovering/Resolving]
  - Blood phosphorus abnormal [Recovered/Resolved]
  - Haemorrhage [Unknown]
  - Asthenia [Unknown]
  - Mobility decreased [Unknown]
  - Haemoglobin abnormal [Recovered/Resolved]
  - Cognitive disorder [Unknown]
  - Motor dysfunction [Unknown]
  - Bedridden [Unknown]
  - Anaemia [Unknown]
  - Asthenia [Unknown]

NARRATIVE: CASE EVENT DATE: 20201101
